FAERS Safety Report 24457287 (Version 2)
Quarter: 2024Q4

REPORT INFORMATION
  Report Type: Report from Study
  Country: BR (occurrence: BR)
  Receive Date: 20241018
  Receipt Date: 20241030
  Transmission Date: 20250114
  Serious: No
  Sender: NOVO NORDISK
  Company Number: BR-NOVOPROD-1297547

PATIENT
  Sex: Female

DRUGS (1)
  1. WEGOVY [Suspect]
     Active Substance: SEMAGLUTIDE
     Indication: Product used for unknown indication
     Dosage: UNK

REACTIONS (1)
  - Constipation [Unknown]
